FAERS Safety Report 19285194 (Version 2)
Quarter: 2021Q3

REPORT INFORMATION
  Report Type: Spontaneous
  Country: US (occurrence: US)
  Receive Date: 20210521
  Receipt Date: 20210823
  Transmission Date: 20211014
  Serious: Yes (Hospitalization)
  Sender: FDA-Public Use
  Company Number: US-BRISTOL-MYERS SQUIBB COMPANY-BMS-2021-047735

PATIENT
  Age: 61 Year
  Sex: Female
  Weight: 55.78 kg

DRUGS (3)
  1. NIVOLUMAB [Suspect]
     Active Substance: NIVOLUMAB
     Indication: LEIOMYOSARCOMA METASTATIC
     Dosage: 158 MILLIGRAM, Q2WK
     Route: 042
     Dates: start: 20201216
  2. IPILIMUMAB [Suspect]
     Active Substance: IPILIMUMAB
     Indication: LEIOMYOSARCOMA METASTATIC
     Dosage: 3.53 MILLIGRAM, Q2WK
     Route: 042
     Dates: start: 20201216
  3. TRABECTEDIN [Suspect]
     Active Substance: TRABECTEDIN
     Indication: LEIOMYOSARCOMA METASTATIC
     Dosage: 1.7 MILLIGRAM, Q3WK
     Route: 042
     Dates: start: 20201202

REACTIONS (2)
  - Abdominal pain [Not Recovered/Not Resolved]
  - Intentional product use issue [Unknown]

NARRATIVE: CASE EVENT DATE: 20210511
